FAERS Safety Report 4408712-0 (Version None)
Quarter: 2004Q3

REPORT INFORMATION
  Report Type: 
  Country: None (occurrence: None)
  Receive Date: 20040727
  Receipt Date: 20040721
  Transmission Date: 20050211
  Serious: Yes (Other)
  Sender: FDA-Public Use
  Company Number: PHRM2004FR02418

PATIENT
  Sex: Female

DRUGS (1)
  1. LAMISIL [Suspect]

REACTIONS (1)
  - TENDON RUPTURE [None]
